FAERS Safety Report 23606210 (Version 2)
Quarter: 2024Q2

REPORT INFORMATION
  Report Type: Report from Study
  Country: US (occurrence: US)
  Receive Date: 20240307
  Receipt Date: 20240402
  Transmission Date: 20240716
  Serious: Yes (Hospitalization, Other)
  Sender: FDA-Public Use
  Company Number: US-BIOVITRUM-2024-US-003798

PATIENT
  Age: 12 Month
  Sex: Female

DRUGS (3)
  1. SYNAGIS [Suspect]
     Active Substance: PALIVIZUMAB
     Indication: Premature baby
     Dosage: 15MG/KG MONTHLY
     Route: 030
     Dates: start: 202311
  2. SYNAGIS [Suspect]
     Active Substance: PALIVIZUMAB
     Dosage: 15MG/KG MONTHLY?100MG/ML
     Route: 030
     Dates: start: 202311
  3. SYNAGIS [Suspect]
     Active Substance: PALIVIZUMAB
     Dosage: 15MG/KG MONTHLY?50MG/0.5ML
     Route: 030
     Dates: start: 202311

REACTIONS (1)
  - Pneumonia [Unknown]
